FAERS Safety Report 8776299 (Version 2)
Quarter: 2012Q4

REPORT INFORMATION
  Report Type: 
  Country: US (occurrence: US)
  Receive Date: 20120910
  Receipt Date: 20121205
  Transmission Date: 20130627
  Serious: Yes (Hospitalization)
  Sender: FDA-Public Use
  Company Number: US-ASTRAZENECA-2012SE59911

PATIENT
  Age: 58 Year
  Sex: Female

DRUGS (2)
  1. ARIMIDEX [Suspect]
     Route: 048
  2. NEXIUM [Suspect]
     Route: 048

REACTIONS (15)
  - Breast cancer [Unknown]
  - Throat cancer [Unknown]
  - Dizziness [Unknown]
  - Hypertension [Unknown]
  - Gastrooesophageal reflux disease [Unknown]
  - Aphonia [Unknown]
  - Muscle spasms [Unknown]
  - Oropharyngeal pain [Unknown]
  - Multiple allergies [Unknown]
  - Influenza like illness [Unknown]
  - Immune system disorder [Unknown]
  - Vertigo [Unknown]
  - Vomiting [Unknown]
  - Circumstance or information capable of leading to medication error [Unknown]
  - Drug dose omission [Unknown]
